FAERS Safety Report 13805217 (Version 2)
Quarter: 2017Q3

REPORT INFORMATION
  Report Type: Spontaneous
  Country: US (occurrence: US)
  Receive Date: 20170728
  Receipt Date: 20170802
  Transmission Date: 20171127
  Serious: No
  Sender: FDA-Public Use
  Company Number: US-PFIZER INC-2017327780

PATIENT
  Age: 57 Year
  Sex: Male
  Weight: 69.49 kg

DRUGS (2)
  1. NICOTROL [Suspect]
     Active Substance: NICOTINE
     Indication: TOBACCO USER
     Dosage: UNK, 2X/DAY
     Dates: end: 20170726
  2. NICOTROL [Suspect]
     Active Substance: NICOTINE
     Indication: SMOKING CESSATION THERAPY
     Dosage: 1 DF, AS NEEDED, ONE SPRAY
     Dates: start: 201706, end: 20170726

REACTIONS (3)
  - Hypersensitivity [Unknown]
  - Rhinalgia [Unknown]
  - Nasal discomfort [Recovering/Resolving]

NARRATIVE: CASE EVENT DATE: 201707
